FAERS Safety Report 6416065-1 (Version None)
Quarter: 2009Q4

REPORT INFORMATION
  Report Type: 
  Country: None (occurrence: None)
  Receive Date: 20091027
  Receipt Date: 20091020
  Transmission Date: 20100525
  Serious: Yes (Death, Hospitalization)
  Sender: FDA-Public Use
  Company Number: US-ELI_LILLY_AND_COMPANY-US200910005644

PATIENT
  Sex: Female

DRUGS (6)
  1. GEMZAR [Suspect]
     Indication: BREAST CANCER METASTATIC
     Dosage: 1786 MG, UNK
     Route: 042
     Dates: start: 20090625, end: 20090911
  2. CARBOPLATIN [Concomitant]
     Indication: BREAST CANCER METASTATIC
     Dates: start: 20090625, end: 20090911
  3. INSULIN [Concomitant]
     Indication: DIABETES MELLITUS
  4. ZOFRAN [Concomitant]
     Indication: PROPHYLAXIS OF NAUSEA AND VOMITING
  5. KYTRIL [Concomitant]
     Indication: PROPHYLAXIS OF NAUSEA AND VOMITING
  6. VICODIN [Concomitant]
     Indication: PAIN

REACTIONS (1)
  - THROMBOTIC THROMBOCYTOPENIC PURPURA [None]
